FAERS Safety Report 9619752 (Version 1)
Quarter: 2013Q4

REPORT INFORMATION
  Report Type: Spontaneous
  Country: CA (occurrence: CA)
  Receive Date: 20131014
  Receipt Date: 20131014
  Transmission Date: 20140711
  Serious: Yes (Death, Hospitalization)
  Sender: FDA-Public Use
  Company Number: CA-BAXTER-2013BAX039445

PATIENT
  Age: 13 Year
  Sex: Female

DRUGS (1)
  1. CEPROTIN 500 IU POWDER AND SOLVENT FOR SOLUTION FOR INJECTION [Suspect]
     Indication: PROTEIN C DEFICIENCY
     Route: 065

REACTIONS (1)
  - Death [Fatal]
